FAERS Safety Report 15744819 (Version 1)
Quarter: 2018Q4

REPORT INFORMATION
  Report Type: Spontaneous
  Country: US (occurrence: US)
  Receive Date: 20181220
  Receipt Date: 20181220
  Transmission Date: 20190205
  Serious: Yes (Hospitalization)
  Sender: FDA-Public Use
  Company Number: None

PATIENT
  Age: 55 Year
  Sex: Female

DRUGS (19)
  1. OXYBUTYNIN ER [Concomitant]
     Active Substance: OXYBUTYNIN
  2. DICLOFENAC TOPICAL GEL [Concomitant]
  3. LOSARTAN POTASSIUM. [Suspect]
     Active Substance: LOSARTAN POTASSIUM
     Indication: HYPERTENSION
     Route: 048
     Dates: start: 20181202, end: 20181204
  4. MEDROXYPROGESTERONE [Concomitant]
     Active Substance: MEDROXYPROGESTERONE
  5. POTASSIUM CHLORIDE ORAL SOLUTION [Concomitant]
     Active Substance: POTASSIUM CHLORIDE
  6. FARXIGA [Concomitant]
     Active Substance: DAPAGLIFLOZIN PROPANEDIOL
  7. METHAZOLAMIDE. [Concomitant]
     Active Substance: METHAZOLAMIDE
  8. ADVAIR DISKUS [Concomitant]
     Active Substance: FLUTICASONE PROPIONATE\SALMETEROL XINAFOATE
  9. METOLAZONE. [Concomitant]
     Active Substance: METOLAZONE
  10. OTEZLA [Concomitant]
     Active Substance: APREMILAST
  11. TORSEMIDE. [Concomitant]
     Active Substance: TORSEMIDE
  12. SPIRONOLACTONE. [Concomitant]
     Active Substance: SPIRONOLACTONE
  13. FERROUS SULFATE. [Concomitant]
     Active Substance: FERROUS SULFATE
  14. POLEYTHYLENE GLYCOL [Concomitant]
  15. ATORVASTATIN [Concomitant]
     Active Substance: ATORVASTATIN
  16. ASPIRIN. [Concomitant]
     Active Substance: ASPIRIN
  17. VENTOLIN HFA [Concomitant]
     Active Substance: ALBUTEROL SULFATE
  18. BYDUREON [Concomitant]
     Active Substance: EXENATIDE
  19. HUMULIN 70/30 [Concomitant]
     Active Substance: INSULIN HUMAN

REACTIONS (4)
  - Rash [None]
  - Dyspnoea [None]
  - Weight increased [None]
  - Pemphigoid [None]

NARRATIVE: CASE EVENT DATE: 20181204
